FAERS Safety Report 5115902-0 (Version None)
Quarter: 2006Q3

REPORT INFORMATION
  Report Type: 
  Country: None (occurrence: None)
  Receive Date: 20060927
  Receipt Date: 20050816
  Transmission Date: 20061208
  Serious: No
  Sender: FDA-Public Use
  Company Number: US-BRISTOL-MYERS SQUIBB COMPANY-13080312

PATIENT
  Age: 60 Year
  Sex: Male

DRUGS (1)
  1. DEFINITY [Suspect]
     Indication: DIAGNOSTIC PROCEDURE
     Route: 040

REACTIONS (2)
  - BACK PAIN [None]
  - MUSCLE SPASMS [None]
